FAERS Safety Report 8508679 (Version 3)
Quarter: 2012Q4

REPORT INFORMATION
  Report Type: 
  Country: US (occurrence: US)
  Receive Date: 20120412
  Receipt Date: 20121025
  Transmission Date: 20130627
  Serious: Yes (Hospitalization)
  Sender: FDA-Public Use
  Company Number: US-ASTRAZENECA-2011SE28481

PATIENT
  Age: 57 Year
  Sex: Male

DRUGS (3)
  1. NEXIUM [Suspect]
     Route: 048
  2. NEXIUM IV [Suspect]
     Route: 042
  3. PRILOSEC [Suspect]
     Route: 048

REACTIONS (11)
  - Cholelithiasis [Unknown]
  - Gastrooesophageal reflux disease [Unknown]
  - Blood pressure increased [Unknown]
  - Gastrooesophageal reflux disease [Unknown]
  - Gastric disorder [Unknown]
  - Adverse event [Unknown]
  - Migraine [Unknown]
  - Sleep apnoea syndrome [Unknown]
  - Malaise [Unknown]
  - Drug dose omission [Unknown]
  - Drug ineffective [Unknown]
